FAERS Safety Report 23476546 (Version 1)
Quarter: 2024Q1

REPORT INFORMATION
  Report Type: Report from Study
  Country: US (occurrence: US)
  Receive Date: 20240204
  Receipt Date: 20240204
  Transmission Date: 20240409
  Serious: No
  Sender: FDA-Public Use
  Company Number: US-EXELIXIS-CABO-23063492

PATIENT
  Sex: Female

DRUGS (11)
  1. CABOMETYX [Suspect]
     Active Substance: CABOZANTINIB S-MALATE
     Indication: Osteosarcoma
     Dosage: 60 MG, QD
     Dates: start: 20230328
  2. CABOMETYX [Suspect]
     Active Substance: CABOZANTINIB S-MALATE
     Indication: Chondrosarcoma
  3. LISINOPRIL [Concomitant]
     Active Substance: LISINOPRIL
  4. SERTRALINE [Concomitant]
     Active Substance: SERTRALINE HYDROCHLORIDE
  5. BUSPIRONE [Concomitant]
     Active Substance: BUSPIRONE HYDROCHLORIDE
  6. TRULICITY [Concomitant]
     Active Substance: DULAGLUTIDE
  7. BASAGLAR [Concomitant]
     Active Substance: INSULIN GLARGINE
  8. PIOGLITAZONE [Concomitant]
     Active Substance: PIOGLITAZONE
  9. VITAMIN D [Concomitant]
     Active Substance: VITAMIN D NOS
  10. DESMOPRESSIN [Concomitant]
     Active Substance: DESMOPRESSIN
  11. VITAMINS [Concomitant]
     Active Substance: VITAMINS

REACTIONS (9)
  - Blister [Unknown]
  - Hair colour changes [Unknown]
  - Fatigue [Unknown]
  - Stomatitis [Unknown]
  - Diarrhoea [Unknown]
  - Pain in extremity [Unknown]
  - Rash [Unknown]
  - Decreased appetite [Unknown]
  - Off label use [Unknown]
